FAERS Safety Report 5004441-3 (Version None)
Quarter: 2006Q2

REPORT INFORMATION
  Report Type: 
  Country: None (occurrence: None)
  Receive Date: 20060517
  Receipt Date: 20050623
  Transmission Date: 20061013
  Serious: Yes (Hospitalization, Disabling)
  Sender: FDA-Public Use
  Company Number: US-ROCHE-408870

PATIENT
  Age: 33 Year
  Sex: Male
  Weight: 81.6 kg

DRUGS (2)
  1. ACCUTANE [Suspect]
     Route: 048
     Dates: start: 20010615, end: 20011115
  2. TYLENOL (CAPLET) [Concomitant]
     Indication: HEADACHE

REACTIONS (32)
  - ABSCESS [None]
  - ANAEMIA [None]
  - COLITIS [None]
  - CROHN'S DISEASE [None]
  - DEFAECATION URGENCY [None]
  - DYSPEPSIA [None]
  - FATIGUE [None]
  - FEELING JITTERY [None]
  - GASTRIC DISORDER [None]
  - GASTROINTESTINAL DISORDER [None]
  - HEPATIC STEATOSIS [None]
  - HYPERSOMNIA [None]
  - HYPOVOLAEMIA [None]
  - INFLAMMATORY BOWEL DISEASE [None]
  - INJECTION SITE THROMBOSIS [None]
  - INTESTINAL HAEMORRHAGE [None]
  - INTESTINAL OBSTRUCTION [None]
  - IRRITABLE BOWEL SYNDROME [None]
  - LOWER RESPIRATORY TRACT INFECTION [None]
  - MULTI-ORGAN DISORDER [None]
  - OESOPHAGEAL DISORDER [None]
  - POSTOPERATIVE WOUND INFECTION [None]
  - PSEUDOPOLYPOSIS [None]
  - RECTAL HAEMORRHAGE [None]
  - RETINOPATHY [None]
  - SCAR [None]
  - SCOTOMA [None]
  - SOMNOLENCE [None]
  - THROMBOPHLEBITIS SUPERFICIAL [None]
  - VISION BLURRED [None]
  - VISUAL ACUITY REDUCED [None]
  - VOMITING [None]
